FAERS Safety Report 5834599-5 (Version None)
Quarter: 2008Q3

REPORT INFORMATION
  Report Type: 
  Country: None (occurrence: None)
  Receive Date: 20080805
  Receipt Date: 20080724
  Transmission Date: 20090109
  Serious: Yes (Death, Hospitalization)
  Sender: FDA-Public Use
  Company Number: BE-PFIZER INC-2008032228

PATIENT
  Sex: Male

DRUGS (5)
  1. SU-011,248 [Suspect]
     Indication: HEAD AND NECK CANCER
     Dosage: DAILY DOSE:37.5MG-FREQ:EVERY DAY
     Route: 048
     Dates: start: 20080229, end: 20080327
  2. DAFALGAN [Concomitant]
     Route: 048
  3. ZOLPIDEM [Concomitant]
     Route: 048
  4. TRANSTEC TTS [Concomitant]
     Route: 062
     Dates: start: 20080310, end: 20080331
  5. BISOPROLOL FUMARATE [Concomitant]
     Route: 048
     Dates: start: 20080310, end: 20080401

REACTIONS (2)
  - ASPHYXIA [None]
  - GENERAL PHYSICAL HEALTH DETERIORATION [None]
